FAERS Safety Report 17334251 (Version 1)
Quarter: 2020Q1

REPORT INFORMATION
  Report Type: Report from Study
  Country: DE (occurrence: DE)
  Receive Date: 20200128
  Receipt Date: 20200128
  Transmission Date: 20200409
  Serious: Yes (Hospitalization)
  Sender: FDA-Public Use
  Company Number: DE-JNJFOC-20200138287

PATIENT
  Age: 5 Decade
  Sex: Male
  Weight: 95 kg

DRUGS (9)
  1. METRONIDAZOLE. [Concomitant]
     Active Substance: METRONIDAZOLE
     Indication: GASTROINTESTINAL INFLAMMATION
     Dates: start: 20191126, end: 20191126
  2. CLEXANE [Concomitant]
     Active Substance: ENOXAPARIN SODIUM
     Indication: SURGERY
  3. TAZOBACTAM [Concomitant]
     Active Substance: TAZOBACTAM
     Dates: start: 20191007, end: 20191007
  4. NEXIUM [Concomitant]
     Active Substance: ESOMEPRAZOLE MAGNESIUM
     Indication: GASTROINTESTINAL DISORDER THERAPY
  5. CLEXANE [Concomitant]
     Active Substance: ENOXAPARIN SODIUM
     Indication: HAEMODILUTION
  6. CIPROFLOXACIN. [Concomitant]
     Active Substance: CIPROFLOXACIN
     Indication: SURGERY
  7. MODAFINIL. [Concomitant]
     Active Substance: MODAFINIL
     Indication: INSOMNIA
  8. PIPERACILLIN. [Concomitant]
     Active Substance: PIPERACILLIN SODIUM
     Dates: start: 20191007, end: 20191007
  9. REMICADE [Suspect]
     Active Substance: INFLIXIMAB
     Indication: CROHN^S DISEASE
     Route: 042
     Dates: start: 20190320

REACTIONS (4)
  - Proctectomy [Recovered/Resolved]
  - Cholelithiasis [Recovered/Resolved]
  - Adhesiolysis [Recovered/Resolved]
  - Postoperative abscess [Recovered/Resolved]

NARRATIVE: CASE EVENT DATE: 20190924
